FAERS Safety Report 5363673-5 (Version None)
Quarter: 2007Q2

REPORT INFORMATION
  Report Type: 
  Country: None (occurrence: None)
  Receive Date: 20070620
  Receipt Date: 20070605
  Transmission Date: 20071010
  Serious: Yes (Other)
  Sender: FDA-Public Use
  Company Number: PT-ROCHE-501070

PATIENT
  Age: 56 Year
  Sex: Female
  Weight: 84 kg

DRUGS (4)
  1. XENICAL [Suspect]
     Indication: OBESITY
     Route: 048
     Dates: start: 20070510, end: 20070517
  2. ZARATOR [Interacting]
     Indication: DYSLIPIDAEMIA
     Route: 048
     Dates: start: 20060201
  3. ALLOPURINOL [Concomitant]
     Indication: GOUT
     Route: 048
     Dates: start: 20060201
  4. PRITOR PLUS [Concomitant]
     Indication: HYPERTENSION
     Route: 048
     Dates: start: 20060201

REACTIONS (2)
  - DRUG INTERACTION [None]
  - MYOSITIS [None]
